FAERS Safety Report 5714755-7 (Version None)
Quarter: 2008Q2

REPORT INFORMATION
  Report Type: 
  Country: None (occurrence: None)
  Receive Date: 20080423
  Receipt Date: 20060418
  Transmission Date: 20081010
  Serious: Yes (Death)
  Sender: FDA-Public Use
  Company Number: ES-ROCHE-444530

PATIENT
  Sex: Male
  Weight: 48.1 kg

DRUGS (2)
  1. CAPECITABINE [Suspect]
     Route: 048
     Dates: start: 20060211
  2. TRANSTEC [Concomitant]
     Dosage: PATCH PER WEEK
     Dates: end: 20060404

REACTIONS (1)
  - DEATH [None]
